FAERS Safety Report 5209362-9 (Version None)
Quarter: 2006Q4

REPORT INFORMATION
  Report Type: 
  Country: None (occurrence: None)
  Receive Date: 20061101
  Receipt Date: 20060913
  Transmission Date: 20070319
  Serious: No
  Sender: FDA-Public Use
  Company Number: SPV1-2006-00617

PATIENT
  Age: 75 Year
  Sex: Female
  Weight: 64 kg

DRUGS (14)
  1. FOSRENOL [Suspect]
     Indication: HYPERPHOSPHATAEMIA
     Dosage: 500 MG, 3X/DAY; TID; ORAL
     Route: 048
     Dates: end: 20060401
  2. CARVEDILOL [Concomitant]
  3. FOLIMET (FOLIC ACID) [Concomitant]
  4. LASIX [Concomitant]
  5. SODIUM POLYSTYRENE SULFONATE [Concomitant]
  6. SUPRESSIN (DOXAZOSIN MESILATE) [Concomitant]
  7. SYSCOR (NISOLDIPINE) [Concomitant]
  8. LORAZEPAM [Concomitant]
  9. ACETYLSALICYLIC ACID SRT [Concomitant]
  10. TRAMADOL HCL [Concomitant]
  11. NEORECORMON (EPOETIN BETA) [Concomitant]
  12. VENOFER [Concomitant]
  13. CEVITOL (ASCORBIC ACID) [Concomitant]
  14. MULTIVIT B (CALCIUM PANTOTHENATE, NICOTINAMIDE, PYRIDOXINE HYDROCHLORI [Concomitant]

REACTIONS (2)
  - ARTHRALGIA [None]
  - GASTROINTESTINAL DISORDER [None]
